FAERS Safety Report 9753619 (Version 1)
Quarter: 2013Q4

REPORT INFORMATION
  Report Type: Spontaneous
  Country: US (occurrence: US)
  Receive Date: 20131213
  Receipt Date: 20131213
  Transmission Date: 20140711
  Serious: Yes (Hospitalization, Other)
  Sender: FDA-Public Use
  Company Number: US-AMGEN-USASP2013086398

PATIENT
  Age: 67 Year
  Sex: Female

DRUGS (4)
  1. ENBREL [Suspect]
     Indication: PSORIASIS
     Dosage: 50 MG, QWK
     Route: 065
     Dates: start: 20071127
  2. HUMIRA [Concomitant]
     Dosage: UNK
  3. PREDNISONE [Concomitant]
     Dosage: UNK
  4. METHOTREXATE [Concomitant]
     Dosage: UNK

REACTIONS (14)
  - Blister [Recovered/Resolved]
  - Weight decreased [Recovered/Resolved]
  - Pustular psoriasis [Recovered/Resolved]
  - Psoriasis [Recovered/Resolved]
  - Gait disturbance [Recovered/Resolved]
  - Skin plaque [Recovered/Resolved]
  - Onychomadesis [Recovered/Resolved]
  - Skin lesion [Recovered/Resolved]
  - Adverse event [Recovered/Resolved]
  - Hepatic enzyme abnormal [Recovered/Resolved]
  - Alopecia [Recovered/Resolved]
  - Hypertension [Recovered/Resolved]
  - Gastrooesophageal reflux disease [Recovered/Resolved]
  - Mobility decreased [Recovered/Resolved]
